FAERS Safety Report 21363470 (Version 3)
Quarter: 2023Q2

REPORT INFORMATION
  Report Type: Spontaneous
  Country: JP (occurrence: JP)
  Receive Date: 20220922
  Receipt Date: 20230503
  Transmission Date: 20230722
  Serious: Yes (Hospitalization)
  Sender: FDA-Public Use
  Company Number: JP-DSJP-DSJ-2022-133454

PATIENT
  Age: 72 Year
  Sex: Female

DRUGS (3)
  1. DENOSUMAB [Suspect]
     Active Substance: DENOSUMAB
     Indication: Osteoporosis
     Dosage: UNK
     Route: 065
     Dates: start: 20140607, end: 20140607
  2. DENOSUMAB [Suspect]
     Active Substance: DENOSUMAB
     Dosage: 60 MILLIGRAM, Q6MO
     Route: 058
     Dates: start: 20220824, end: 20220824
  3. WARFARIN [Concomitant]
     Active Substance: WARFARIN
     Indication: Thrombosis
     Dosage: UNK
     Route: 065

REACTIONS (3)
  - Peripheral swelling [Recovering/Resolving]
  - Pain in extremity [Recovering/Resolving]
  - Erythema [Unknown]

NARRATIVE: CASE EVENT DATE: 20220825
